FAERS Safety Report 7617240-0 (Version None)
Quarter: 2011Q3

REPORT INFORMATION
  Report Type: 
  Country: None (occurrence: None)
  Receive Date: 20110718
  Receipt Date: 20110708
  Transmission Date: 20111222
  Serious: Yes (Other)
  Sender: FDA-Public Use
  Company Number: US-US-EMD SERONO, INC.-7070087

PATIENT
  Sex: Female

DRUGS (4)
  1. REBIF [Suspect]
     Route: 058
     Dates: start: 20110601, end: 20110706
  2. WELLBUTRIN [Concomitant]
     Indication: POSTPARTUM DEPRESSION
  3. ESTRADIOL [Concomitant]
     Indication: HYSTERECTOMY
     Dates: start: 20110501
  4. REBIF [Suspect]
     Indication: MULTIPLE SCLEROSIS
     Route: 058
     Dates: start: 20100413

REACTIONS (6)
  - VENTRICULAR EXTRASYSTOLES [None]
  - DEPRESSED MOOD [None]
  - INAPPROPRIATE SCHEDULE OF DRUG ADMINISTRATION [None]
  - PANIC ATTACK [None]
  - FIBROMYALGIA [None]
  - HYPERTENSION [None]
